FAERS Safety Report 4319697-X (Version None)
Quarter: 2004Q1

REPORT INFORMATION
  Report Type: 
  Country: None (occurrence: None)
  Receive Date: 20040319
  Receipt Date: 20040113
  Transmission Date: 20041129
  Serious: Yes (Death)
  Sender: FDA-Public Use
  Company Number: WAES 0401USA00981

PATIENT
  Age: 47 Year
  Sex: Male

DRUGS (3)
  1. VICODIN [Concomitant]
  2. NEURONTIN [Concomitant]
  3. VIOXX [Suspect]
     Indication: PAIN
     Route: 048
     Dates: start: 20020101

REACTIONS (1)
  - MYOCARDIAL INFARCTION [None]
